FAERS Safety Report 19847480 (Version 1)
Quarter: 2021Q3

REPORT INFORMATION
  Report Type: Spontaneous
  Country: DE (occurrence: DE)
  Receive Date: 20210917
  Receipt Date: 20210917
  Transmission Date: 20211014
  Serious: Yes (Hospitalization)
  Sender: FDA-Public Use
  Company Number: DE-TEVA-2021-DE-1951975

PATIENT
  Age: 51 Year
  Sex: Female
  Weight: 71 kg

DRUGS (5)
  1. VENLAFAXIN [Suspect]
     Active Substance: VENLAFAXINE HYDROCHLORIDE
     Dosage: 150 MILLIGRAM DAILY;  1?0?0?0
  2. PREGABALIN. [Concomitant]
     Active Substance: PREGABALIN
     Dosage: 100 MILLIGRAM DAILY;  0?0?1?0
  3. TILIDINE/NALOXONE [Concomitant]
     Active Substance: NALOXONE HYDROCHLORIDE\TILIDINE HYDROCHLORIDE
     Dosage: 2 DOSAGE FORMS DAILY; 4|50 MG, 1?0?1?0
  4. IBUPROFEN. [Suspect]
     Active Substance: IBUPROFEN
     Dosage: 800 MG, BREAK
  5. METAMIZOL [Concomitant]
     Active Substance: METAMIZOLE SODIUM
     Dosage: 4 DOSAGE FORMS DAILY; 40 DROPS, 1?1?1?1

REACTIONS (4)
  - Anaemia [Unknown]
  - Condition aggravated [Unknown]
  - Haematochezia [Unknown]
  - General physical health deterioration [Unknown]
